FAERS Safety Report 20625582 (Version 1)
Quarter: 2022Q1

REPORT INFORMATION
  Report Type: Spontaneous
  Country: US (occurrence: None)
  Receive Date: 20220323
  Receipt Date: 20220323
  Transmission Date: 20220423
  Serious: No
  Sender: FDA-Public Use
  Company Number: US-ROCHE-2945772

PATIENT
  Sex: Female

DRUGS (7)
  1. ERIVEDGE [Suspect]
     Active Substance: VISMODEGIB
     Indication: Skin cancer
     Route: 048
     Dates: start: 20210826
  2. DOXYCYCLINE [Concomitant]
     Active Substance: DOXYCYCLINE
  3. GABAPENTIN [Concomitant]
     Active Substance: GABAPENTIN
  4. HYDROCHLOROTHIAZIDE [Concomitant]
     Active Substance: HYDROCHLOROTHIAZIDE
  5. PERCOCET [Concomitant]
     Active Substance: ACETAMINOPHEN\OXYCODONE HYDROCHLORIDE
     Dosage: 5-325 MG
  6. TYLENOL 8HR [Concomitant]
     Active Substance: ACETAMINOPHEN
  7. XARELTO [Concomitant]
     Active Substance: RIVAROXABAN

REACTIONS (1)
  - Alopecia [Unknown]
